FAERS Safety Report 25901431 (Version 1)
Quarter: 2025Q4

REPORT INFORMATION
  Report Type: Spontaneous
  Country: US (occurrence: None)
  Receive Date: 20251009
  Receipt Date: 20251009
  Transmission Date: 20260118
  Serious: Yes (Hospitalization)
  Sender: FDA-CTU
  Company Number: None

PATIENT
  Sex: Male

DRUGS (11)
  1. LENALIDOMIDE [Suspect]
     Active Substance: LENALIDOMIDE
     Indication: Plasma cell myeloma
     Dosage: TAKE 1 CAPSULE BY MOUTH DAILY.
     Route: 048
     Dates: start: 20250227
  2. ACYCLOVIR [Concomitant]
     Active Substance: ACYCLOVIR
  3. ADVAIR DISKU AER 100/50 [Concomitant]
  4. ASPIRIN [Concomitant]
     Active Substance: ASPIRIN
  5. KP VITAMIN D [Concomitant]
  6. LENALIDOMIDE CAP 1 0MG [Concomitant]
  7. LEVOTHYROXIN TAB 112MCG [Concomitant]
  8. METFORMIN [Concomitant]
     Active Substance: METFORMIN HYDROCHLORIDE
  9. MIRALAX POW 3350 NF [Concomitant]
  10. OXYCODONE TAB 10MG [Concomitant]
  11. PROTONIX TAB 40MG [Concomitant]

REACTIONS (2)
  - Pneumonia [None]
  - Back pain [None]
